FAERS Safety Report 5951242-5 (Version None)
Quarter: 2008Q4

REPORT INFORMATION
  Report Type: 
  Country: None (occurrence: None)
  Receive Date: 20081022
  Receipt Date: 20080819
  Transmission Date: 20090506
  Serious: No
  Sender: FDA-Public Use
  Company Number: SPV1-2008-01780

PATIENT
  Age: 7 Year
  Sex: Female
  Weight: 17.2 kg

DRUGS (2)
  1. VYVANSE [Suspect]
     Indication: ATTENTION DEFICIT/HYPERACTIVITY DISORDER
     Dosage: 30 MG, 1X/DAY: QD, ORAL; HALF 30 MG CAPSULE, 1X/DAY: QD, ORAL
     Route: 048
     Dates: start: 20080601, end: 20080601
  2. VYVANSE [Suspect]
     Indication: ATTENTION DEFICIT/HYPERACTIVITY DISORDER
     Dosage: 30 MG, 1X/DAY: QD, ORAL; HALF 30 MG CAPSULE, 1X/DAY: QD, ORAL
     Route: 048
     Dates: start: 20080601, end: 20080601

REACTIONS (4)
  - CHEST PAIN [None]
  - DRUG PRESCRIBING ERROR [None]
  - DRY MOUTH [None]
  - TIC [None]
